FAERS Safety Report 8815174 (Version 3)
Quarter: 2012Q4

REPORT INFORMATION
  Report Type: 
  Country: IT (occurrence: IT)
  Receive Date: 20120928
  Receipt Date: 20121102
  Transmission Date: 20130627
  Serious: Yes (Hospitalization)
  Sender: FDA-Public Use
  Company Number: IT-ABBOTT-12P-083-0983363-00

PATIENT
  Age: 69 Year
  Sex: Male

DRUGS (7)
  1. NORVIR [Suspect]
     Indication: HIV INFECTION
     Route: 048
     Dates: start: 20091022, end: 20120913
  2. TRUVADA [Suspect]
     Indication: HEPATITIS B
     Dosage: 200 mg/245 mg
     Route: 048
     Dates: start: 20091022, end: 20120913
  3. TRUVADA [Suspect]
     Indication: HIV INFECTION
  4. REYATAZ [Suspect]
     Indication: HIV INFECTION
     Route: 048
     Dates: start: 20091022, end: 20120913
  5. RAMIPRIL [Concomitant]
     Indication: HYPERTENSION
  6. COUMADIN [Concomitant]
     Indication: PRODUCT USED FOR UNKNOWN INDICATION
     Route: 048
  7. ENTECAVIR [Concomitant]
     Indication: ANTIRETROVIRAL THERAPY

REACTIONS (3)
  - Renal failure acute [Recovering/Resolving]
  - Renal impairment [Recovering/Resolving]
  - Hyperkalaemia [Recovering/Resolving]
